FAERS Safety Report 22187788 (Version 1)
Quarter: 2023Q2

REPORT INFORMATION
  Report Type: Report from Study
  Country: US (occurrence: US)
  Receive Date: 20230408
  Receipt Date: 20230408
  Transmission Date: 20230722
  Serious: Yes (Other)
  Sender: FDA-Public Use
  Company Number: US-ABBVIE-4720373

PATIENT
  Age: 64 Year
  Sex: Male

DRUGS (1)
  1. SKYRIZI [Suspect]
     Active Substance: RISANKIZUMAB-RZAA
     Indication: Psoriasis
     Dosage: FORM STRENGTH: 150MG?INJECT 1 PEN AT WEEK-0, WEEK-4, THEN EVERY 12-WEEKS THEREAFTER
     Route: 058
     Dates: start: 20220504, end: 202301

REACTIONS (3)
  - Throat cancer [Unknown]
  - Gastrointestinal tube insertion [Unknown]
  - Central venous catheterisation [Unknown]

NARRATIVE: CASE EVENT DATE: 20230101
